FAERS Safety Report 8817813 (Version 1)
Quarter: 2012Q4

REPORT INFORMATION
  Report Type: 
  Country: KR (occurrence: KR)
  Receive Date: 20121001
  Receipt Date: 20121001
  Transmission Date: 20130627
  Serious: Yes (Hospitalization)
  Sender: FDA-Public Use
  Company Number: KR-SANOFI-AVENTIS-2012SA071080

PATIENT
  Age: 68 Year
  Sex: Male

DRUGS (4)
  1. ARAVA [Suspect]
     Indication: DRUG USE FOR UNKNOWN INDICATION
     Route: 065
     Dates: start: 2009
  2. FOLIC ACID [Suspect]
     Indication: RHEUMATOID ARTHRITIS
     Route: 048
     Dates: start: 20091214, end: 20120825
  3. UNSPECIFIED INGREDIENT [Suspect]
     Indication: RHEUMATOID ARTHRITIS
     Route: 058
     Dates: start: 20120621, end: 20120803
  4. METHOTREXATE [Suspect]
     Indication: RHEUMATOID ARTHRITIS
     Route: 048
     Dates: start: 20100601, end: 20120810

REACTIONS (7)
  - Pneumonia [Recovering/Resolving]
  - Dyspnoea [Recovering/Resolving]
  - C-reactive protein increased [Recovering/Resolving]
  - Asthenia [Unknown]
  - Pneumomediastinum [Recovering/Resolving]
  - Pneumonitis [Unknown]
  - Thrombocytopenia [Unknown]
